FAERS Safety Report 19671741 (Version 1)
Quarter: 2021Q3

REPORT INFORMATION
  Report Type: Other
  Country: US (occurrence: US)
  Receive Date: 20210806
  Receipt Date: 20210806
  Transmission Date: 20211014
  Serious: Yes (Other)
  Sender: FDA-Public Use
  Company Number: US-APOTEX-2021AP031265

PATIENT
  Age: 38 Year
  Sex: Female

DRUGS (18)
  1. ZANTAC [Suspect]
     Active Substance: RANITIDINE HYDROCHLORIDE
     Indication: INTESTINAL ULCER
  2. ZANTAC [Suspect]
     Active Substance: RANITIDINE HYDROCHLORIDE
     Indication: GASTRIC ULCER
  3. ZANTAC [Suspect]
     Active Substance: RANITIDINE HYDROCHLORIDE
     Dosage: DAILY
     Route: 065
     Dates: start: 198901, end: 201603
  4. RANITIDINE TABLETS [Suspect]
     Active Substance: RANITIDINE HYDROCHLORIDE
     Indication: INTESTINAL ULCER
  5. ZANTAC [Suspect]
     Active Substance: RANITIDINE HYDROCHLORIDE
     Indication: DYSPEPSIA
  6. ZANTAC [Suspect]
     Active Substance: RANITIDINE HYDROCHLORIDE
     Indication: ABDOMINAL DISCOMFORT
  7. RANITIDINE TABLETS [Suspect]
     Active Substance: RANITIDINE HYDROCHLORIDE
     Indication: DYSPEPSIA
  8. RANITIDINE TABLETS [Suspect]
     Active Substance: RANITIDINE HYDROCHLORIDE
     Indication: DYSPEPSIA
  9. ZANTAC [Suspect]
     Active Substance: RANITIDINE HYDROCHLORIDE
     Indication: GASTROOESOPHAGEAL REFLUX DISEASE
  10. RANITIDINE TABLETS [Suspect]
     Active Substance: RANITIDINE HYDROCHLORIDE
     Dosage: DAILY
     Route: 065
     Dates: start: 199001, end: 201603
  11. RANITIDINE TABLETS [Suspect]
     Active Substance: RANITIDINE HYDROCHLORIDE
     Indication: ABDOMINAL DISCOMFORT
  12. ZANTAC [Suspect]
     Active Substance: RANITIDINE HYDROCHLORIDE
     Indication: DYSPEPSIA
  13. RANITIDINE TABLETS [Suspect]
     Active Substance: RANITIDINE HYDROCHLORIDE
     Indication: DYSPEPSIA
  14. RANITIDINE TABLETS [Suspect]
     Active Substance: RANITIDINE HYDROCHLORIDE
     Indication: EROSIVE OESOPHAGITIS
  15. RANITIDINE TABLETS [Suspect]
     Active Substance: RANITIDINE HYDROCHLORIDE
     Indication: GASTROOESOPHAGEAL REFLUX DISEASE
  16. ZANTAC [Suspect]
     Active Substance: RANITIDINE HYDROCHLORIDE
     Indication: DYSPEPSIA
  17. RANITIDINE TABLETS [Suspect]
     Active Substance: RANITIDINE HYDROCHLORIDE
     Indication: GASTRIC ULCER
  18. ZANTAC [Suspect]
     Active Substance: RANITIDINE HYDROCHLORIDE
     Indication: EROSIVE OESOPHAGITIS

REACTIONS (2)
  - Breast cancer [Not Recovered/Not Resolved]
  - Thyroid cancer [Not Recovered/Not Resolved]

NARRATIVE: CASE EVENT DATE: 20151101
